FAERS Safety Report 7659532-5 (Version None)
Quarter: 2011Q3

REPORT INFORMATION
  Report Type: 
  Country: None (occurrence: None)
  Receive Date: 20110805
  Receipt Date: 20110803
  Transmission Date: 20111222
  Serious: Yes (Other)
  Sender: FDA-Public Use
  Company Number: CA-PFIZER INC-2011177588

PATIENT
  Age: 27 Year
  Sex: Male

DRUGS (3)
  1. VARENICLINE TARTRATE [Suspect]
     Indication: SMOKING CESSATION THERAPY
     Dosage: 0.5 MG, UNK
     Route: 048
     Dates: start: 20110706
  2. OXYCONTIN [Concomitant]
     Dosage: 40 MG, 3X/DAY
  3. OXYCONTIN [Concomitant]
     Indication: PAIN
     Dosage: 20 MG, EVERY 6 HOURS

REACTIONS (1)
  - APHASIA [None]
